FAERS Safety Report 4554123-7 (Version None)
Quarter: 2005Q1

REPORT INFORMATION
  Report Type: 
  Country: None (occurrence: None)
  Receive Date: 20050113
  Receipt Date: 20050113
  Transmission Date: 20050727
  Serious: No
  Sender: FDA-Public Use
  Company Number: None

PATIENT
  Age: 56 Year
  Sex: Male
  Weight: 50.3493 kg

DRUGS (1)
  1. VIREAD [Suspect]
     Indication: FANCONI SYNDROME ACQUIRED
     Dosage: 300MG  QD ORAL
     Route: 048
     Dates: start: 20020314, end: 20041230

REACTIONS (1)
  - FANCONI SYNDROME ACQUIRED [None]
